FAERS Safety Report 4654259-6 (Version None)
Quarter: 2005Q2

REPORT INFORMATION
  Report Type: 
  Country: None (occurrence: None)
  Receive Date: 20050404
  Receipt Date: 20041213
  Transmission Date: 20051028
  Serious: No
  Sender: FDA-Public Use
  Company Number: USA041286065

PATIENT
  Age: 60 Year
  Sex: Female

DRUGS (3)
  1. CYMBALTA [Suspect]
     Indication: MAJOR DEPRESSION
     Dosage: 60 MG
     Dates: start: 20041029
  2. KLONOPIN [Concomitant]
  3. LEXAPRO [Concomitant]

REACTIONS (2)
  - JAW DISORDER [None]
  - ROAD TRAFFIC ACCIDENT [None]
